FAERS Safety Report 22192840 (Version 2)
Quarter: 2023Q2

REPORT INFORMATION
  Report Type: Spontaneous
  Country: US (occurrence: US)
  Receive Date: 20230410
  Receipt Date: 20230419
  Transmission Date: 20230722
  Serious: No
  Sender: FDA-Public Use
  Company Number: US-AMGEN-USASP2023057707

PATIENT
  Age: 73 Year
  Sex: Male
  Weight: 78.912 kg

DRUGS (1)
  1. NEULASTA [Suspect]
     Active Substance: PEGFILGRASTIM
     Indication: Neoplasm malignant
     Dosage: UNK UNK, Q3WK
     Route: 065

REACTIONS (1)
  - Device placement issue [Unknown]

NARRATIVE: CASE EVENT DATE: 20230301
